FAERS Safety Report 5481287-3 (Version None)
Quarter: 2007Q4

REPORT INFORMATION
  Report Type: 
  Country: None (occurrence: None)
  Receive Date: 20071005
  Receipt Date: 20071005
  Transmission Date: 20080405
  Serious: Yes (Hospitalization)
  Sender: FDA-Public Use
  Company Number: None

PATIENT
  Age: 65 Year
  Sex: Male
  Weight: 90 kg

DRUGS (1)
  1. AVELOX [Suspect]
     Indication: ANTI-INFECTIVE THERAPY
     Dosage: 400 MG DAILY PO
     Route: 048
     Dates: start: 20071001, end: 20071001

REACTIONS (7)
  - CHEST PAIN [None]
  - DYSPNOEA [None]
  - HYPOTENSION [None]
  - NAUSEA [None]
  - PRESYNCOPE [None]
  - PYREXIA [None]
  - URTICARIA [None]
